FAERS Safety Report 18443507 (Version 1)
Quarter: 2020Q4

REPORT INFORMATION
  Report Type: Report from Study
  Country: None (occurrence: JP)
  Receive Date: 20201029
  Receipt Date: 20201029
  Transmission Date: 20210114
  Serious: Yes (Hospitalization)
  Sender: FDA-Public Use
  Company Number: JP-TEVA-2020-JP-1842183

PATIENT
  Age: 60 Year
  Sex: Male

DRUGS (13)
  1. PREDNISOLONE. [Suspect]
     Active Substance: PREDNISOLONE
     Indication: DERMATOMYOSITIS
     Dosage: THERAPY WAS HELD DURING SECOND COURSE OF PULSED THERAPY WITH METHYLPREDNISOLONE AND RESUMED THERE...
     Route: 048
  2. CICLOSPORIN [Suspect]
     Active Substance: CYCLOSPORINE
     Indication: INTERSTITIAL LUNG DISEASE
  3. CYCLOPHOSPHAMIDE. [Suspect]
     Active Substance: CYCLOPHOSPHAMIDE
     Indication: INTERSTITIAL LUNG DISEASE
  4. TACROLIMUS. [Suspect]
     Active Substance: TACROLIMUS
     Indication: DERMATOMYOSITIS
     Dosage: DOSES WERE ADJUSTED TO MAINTAIN A SERUM TROUGH LEVEL WITHIN 10-12 NG/ML
     Route: 065
  5. TACROLIMUS. [Suspect]
     Active Substance: TACROLIMUS
     Indication: INTERSTITIAL LUNG DISEASE
  6. ALBUMIN [Concomitant]
     Active Substance: ALBUMIN HUMAN
     Indication: INTERSTITIAL LUNG DISEASE
  7. PREDNISOLONE. [Suspect]
     Active Substance: PREDNISOLONE
     Indication: INTERSTITIAL LUNG DISEASE
  8. CYCLOPHOSPHAMIDE. [Suspect]
     Active Substance: CYCLOPHOSPHAMIDE
     Indication: DERMATOMYOSITIS
     Dosage: PULSE THERAPY; ADMINISTERED EVERY TWO WEEKS FOR THE FIRST SIX SESSIONS, BUT WAS SOMETIMES POSTPON...
     Route: 042
  9. METHYLPREDNISOLONE. [Suspect]
     Active Substance: METHYLPREDNISOLONE
     Indication: INTERSTITIAL LUNG DISEASE
  10. ALBUMIN [Concomitant]
     Active Substance: ALBUMIN HUMAN
     Indication: FLUID REPLACEMENT
  11. METHYLPREDNISOLONE. [Suspect]
     Active Substance: METHYLPREDNISOLONE
     Indication: DERMATOMYOSITIS
     Dosage: RECEIVED TWO 3-DAY COURSES
     Route: 065
  12. CICLOSPORIN [Suspect]
     Active Substance: CYCLOSPORINE
     Indication: DERMATOMYOSITIS
     Dosage: DOSE WAS ADJUSTED TO MAINTAIN THE SERUM CONCENTRATION WITHIN THE TARGET LEVEL OF 1600-2500 NG/H/M...
     Route: 065
  13. ALBUMIN [Concomitant]
     Active Substance: ALBUMIN HUMAN
     Indication: DERMATOMYOSITIS
     Dosage: ADMINISTERED VIA DOUBLE-LUMEN CATHETER INSERTED INTO THE FEMORAL VEIN IN TPE FOR REPLACEMENT FLUID
     Route: 065

REACTIONS (4)
  - Subcutaneous haematoma [Unknown]
  - Drug ineffective [Unknown]
  - Myelosuppression [Unknown]
  - Cytomegalovirus infection reactivation [Unknown]
